FAERS Safety Report 16445687 (Version 1)
Quarter: 2019Q2

REPORT INFORMATION
  Report Type: Spontaneous
  Country: US (occurrence: US)
  Receive Date: 20190618
  Receipt Date: 20190618
  Transmission Date: 20190711
  Serious: No
  Sender: FDA-Public Use
  Company Number: US-PFIZER INC-2019186460

PATIENT
  Age: 11 Year
  Sex: Male
  Weight: 51.7 kg

DRUGS (1)
  1. CORTEF [Suspect]
     Active Substance: HYDROCORTISONE
     Indication: ADRENOGENITAL SYNDROME
     Dosage: 5.5 DF, DAILY (FOUR TABLETS IN THE MORNING, 1.5 TABLETS AT NIGHT)
     Route: 048
     Dates: start: 2014

REACTIONS (1)
  - Laboratory test abnormal [Not Recovered/Not Resolved]
